FAERS Safety Report 23649233 (Version 3)
Quarter: 2024Q2

REPORT INFORMATION
  Report Type: Spontaneous
  Country: US (occurrence: US)
  Receive Date: 20240319
  Receipt Date: 20240425
  Transmission Date: 20240716
  Serious: No
  Sender: FDA-Public Use
  Company Number: US-AMGEN-USASP2024052687

PATIENT
  Age: 80 Year
  Sex: Female
  Weight: 88 kg

DRUGS (1)
  1. RIABNI [Suspect]
     Active Substance: RITUXIMAB-ARRX
     Indication: Rheumatoid arthritis
     Dosage: DOSE ORDERED: 500 MG, DOSE REQUESTED: 500 MG, Q6MO
     Route: 065
     Dates: start: 20230119

REACTIONS (1)
  - Intercepted product preparation error [Unknown]

NARRATIVE: CASE EVENT DATE: 20240214
